FAERS Safety Report 18772198 (Version 1)
Quarter: 2021Q1

REPORT INFORMATION
  Report Type: Spontaneous
  Country: CN (occurrence: CN)
  Receive Date: 20210122
  Receipt Date: 20210122
  Transmission Date: 20210419
  Serious: Yes (Death, Other)
  Sender: FDA-Public Use
  Company Number: CN-SA-2021SA018395

PATIENT

DRUGS (2)
  1. CAPECITABINE. [Suspect]
     Active Substance: CAPECITABINE
     Indication: OESOPHAGEAL CARCINOMA
     Dosage: 1000 MG/M2, BID
     Route: 048
  2. OXALIPLATIN. [Suspect]
     Active Substance: OXALIPLATIN
     Indication: OESOPHAGEAL CARCINOMA
     Dosage: INTRAVENOUS INFUSION OVER 2 HOURS ON DAY 1
     Route: 042

REACTIONS (2)
  - Upper gastrointestinal haemorrhage [Fatal]
  - Thrombocytopenia [Fatal]
